FAERS Safety Report 8371628-1 (Version None)
Quarter: 2012Q2

REPORT INFORMATION
  Report Type: 
  Country: None (occurrence: None)
  Receive Date: 20120518
  Receipt Date: 20120508
  Transmission Date: 20120825
  Serious: No
  Sender: FDA-Public Use
  Company Number: US-ASTRAZENECA-2012SE29849

PATIENT
  Age: 43 Year
  Sex: Female

DRUGS (2)
  1. ATENOLOL [Suspect]
     Route: 065
  2. METOPROLOL SUCCINATE [Suspect]
     Route: 048

REACTIONS (1)
  - ADVERSE EVENT [None]
